FAERS Safety Report 18058265 (Version 1)
Quarter: 2020Q3

REPORT INFORMATION
  Report Type: Spontaneous
  Country: CA (occurrence: CA)
  Receive Date: 20200723
  Receipt Date: 20200723
  Transmission Date: 20201103
  Serious: Yes (Hospitalization)
  Sender: FDA-Public Use
  Company Number: CA-DRREDDYS-USA/CAN/20/0125035

PATIENT
  Age: 35 Year
  Sex: Female

DRUGS (1)
  1. ZOLEDRONIC [Suspect]
     Active Substance: ZOLEDRONIC ACID
     Indication: PRODUCT USED FOR UNKNOWN INDICATION
     Dosage: 5 MG/100 ML
     Route: 051
     Dates: start: 20200610

REACTIONS (12)
  - Malaise [Unknown]
  - Pyrexia [Unknown]
  - Abdominal pain [Unknown]
  - Chills [Unknown]
  - Myalgia [Unknown]
  - Head discomfort [Unknown]
  - Migraine [Unknown]
  - Feeling of body temperature change [Unknown]
  - Headache [Unknown]
  - Muscle spasms [Unknown]
  - Tachycardia [Unknown]
  - Nausea [Unknown]

NARRATIVE: CASE EVENT DATE: 20200611
